FAERS Safety Report 13307460 (Version 1)
Quarter: 2017Q1

REPORT INFORMATION
  Report Type: Spontaneous
  Country: US (occurrence: US)
  Receive Date: 20170308
  Receipt Date: 20170308
  Transmission Date: 20170428
  Serious: Yes (Hospitalization)
  Sender: FDA-Public Use
  Company Number: US-MALLINCKRODT-T201700796

PATIENT
  Age: 39 Year
  Sex: Male
  Weight: 63.5 kg

DRUGS (1)
  1. H.P. ACTHAR [Suspect]
     Active Substance: CORTICOTROPIN
     Indication: GLOMERULONEPHRITIS MEMBRANOPROLIFERATIVE
     Dosage: 80 UNITS, TWICE WEEKLY
     Route: 058
     Dates: start: 201610, end: 201701

REACTIONS (1)
  - Acute hepatic failure [Unknown]

NARRATIVE: CASE EVENT DATE: 20170221
